FAERS Safety Report 21601072 (Version 1)
Quarter: 2022Q4

REPORT INFORMATION
  Report Type: Other
  Country: None (occurrence: US)
  Receive Date: 20221116
  Receipt Date: 20221116
  Transmission Date: 20230113
  Serious: No
  Sender: FDA-Public Use
  Company Number: US-Ascent Pharmaceuticals, Inc.-2134925

PATIENT
  Sex: Male

DRUGS (1)
  1. METHYLPHENIDATE HYDROCHLORIDE [Suspect]
     Active Substance: METHYLPHENIDATE HYDROCHLORIDE
     Indication: Attention deficit hyperactivity disorder
     Route: 065
     Dates: start: 20220822

REACTIONS (7)
  - Behaviour disorder [Unknown]
  - Irritability [Unknown]
  - Disturbance in attention [Unknown]
  - Aggression [Unknown]
  - Educational problem [Unknown]
  - Drug ineffective [Unknown]
  - Product substitution issue [Unknown]
